FAERS Safety Report 11061125 (Version 2)
Quarter: 2015Q2

REPORT INFORMATION
  Report Type: Spontaneous
  Country: US (occurrence: US)
  Receive Date: 20150424
  Receipt Date: 20150629
  Transmission Date: 20150821
  Serious: Yes (Hospitalization, Other)
  Sender: FDA-Public Use
  Company Number: US-AUROBINDO-AUR-APL-2015-03524

PATIENT
  Age: 80 Year
  Sex: Male
  Weight: 92.97 kg

DRUGS (3)
  1. TAMSULOSIN HYDROCHLORIDE CAPSULES USP 0.4 MG [Suspect]
     Active Substance: TAMSULOSIN HYDROCHLORIDE
     Indication: THYROID DISORDER
  2. TAMSULOSIN HYDROCHLORIDE CAPSULES USP 0.4 MG [Suspect]
     Active Substance: TAMSULOSIN HYDROCHLORIDE
     Indication: PROSTATIC DISORDER
  3. TAMSULOSIN HYDROCHLORIDE CAPSULES USP 0.4 MG [Suspect]
     Active Substance: TAMSULOSIN HYDROCHLORIDE
     Indication: HYPERTENSION
     Dosage: 0.4 MG, UNK
     Route: 065
     Dates: end: 201504

REACTIONS (4)
  - Herpes zoster [Unknown]
  - Swelling face [Unknown]
  - Swollen tongue [Unknown]
  - Rash [Unknown]

NARRATIVE: CASE EVENT DATE: 20150328
